FAERS Safety Report 12641946 (Version 2)
Quarter: 2017Q4

REPORT INFORMATION
  Report Type: Spontaneous
  Country: PT (occurrence: PT)
  Receive Date: 20160810
  Receipt Date: 20171012
  Transmission Date: 20180320
  Serious: Yes (Other)
  Sender: FDA-Public Use
  Company Number: PT-UCBSA-2016030852

PATIENT
  Age: 33 Year
  Sex: Male
  Weight: 78 kg

DRUGS (2)
  1. LEVETIRACETAM UCB [Suspect]
     Active Substance: LEVETIRACETAM
     Indication: SEIZURE
     Dosage: 1000 MG, 2X/DAY (BID)
     Route: 048
     Dates: start: 201603
  2. KEPPRA [Concomitant]
     Active Substance: LEVETIRACETAM
     Indication: SEIZURE
     Dosage: 1 DF, ONCE DAILY (QD)
     Dates: start: 201311, end: 201603

REACTIONS (4)
  - Seizure [Recovered/Resolved]
  - Drug ineffective [Unknown]
  - Electroencephalogram abnormal [Recovered/Resolved]
  - Product substitution issue [Unknown]

NARRATIVE: CASE EVENT DATE: 20160726
